FAERS Safety Report 23623548 (Version 1)
Quarter: 2024Q1

REPORT INFORMATION
  Report Type: Spontaneous
  Country: US (occurrence: US)
  Receive Date: 20240312
  Receipt Date: 20240312
  Transmission Date: 20240409
  Serious: Yes (Other)
  Sender: FDA-Public Use
  Company Number: US-PFIZER INC-PV202300201004

PATIENT
  Age: 75 Year
  Sex: Male
  Weight: 53.515 kg

DRUGS (2)
  1. TALZENNA [Suspect]
     Active Substance: TALAZOPARIB TOSYLATE
     Indication: Prostate cancer
     Dosage: UNK
     Dates: start: 20231222
  2. XTANDI [Suspect]
     Active Substance: ENZALUTAMIDE
     Dosage: 4 TABS DAILY
     Dates: start: 20231222

REACTIONS (7)
  - Weight decreased [Not Recovered/Not Resolved]
  - Spinal pain [Not Recovered/Not Resolved]
  - Asthenia [Not Recovered/Not Resolved]
  - Coordination abnormal [Not Recovered/Not Resolved]
  - Visual impairment [Not Recovered/Not Resolved]
  - Dizziness [Not Recovered/Not Resolved]
  - Neoplasm progression [Not Recovered/Not Resolved]
